FAERS Safety Report 6647473-1 (Version None)
Quarter: 2010Q1

REPORT INFORMATION
  Report Type: 
  Country: None (occurrence: None)
  Receive Date: 20100323
  Receipt Date: 20100323
  Transmission Date: 20100710
  Serious: No
  Sender: FDA-Public Use
  Company Number: None

PATIENT
  Sex: Female
  Weight: 62.5964 kg

DRUGS (1)
  1. CARVEDILOL [Suspect]
     Dates: start: 20090803

REACTIONS (2)
  - DYSPEPSIA [None]
  - FAECES DISCOLOURED [None]
